FAERS Safety Report 25939591 (Version 1)
Quarter: 2025Q4

REPORT INFORMATION
  Report Type: Report from Study
  Country: PK (occurrence: PK)
  Receive Date: 20251020
  Receipt Date: 20251020
  Transmission Date: 20260117
  Serious: Yes (Death, Other)
  Sender: ROCHE
  Company Number: PK-ROCHE-10000411325

PATIENT
  Age: 58 Year
  Sex: Male

DRUGS (1)
  1. AVASTIN [Suspect]
     Active Substance: BEVACIZUMAB
     Indication: Colorectal cancer metastatic
     Route: 042
     Dates: start: 20250603

REACTIONS (10)
  - Death [Fatal]
  - Abdominal pain [Unknown]
  - Vomiting [Unknown]
  - Dyspepsia [Unknown]
  - Metastases to abdominal cavity [Unknown]
  - Pyrexia [Unknown]
  - Dyspnoea [Unknown]
  - Food intolerance [Unknown]
  - Metastases to liver [Unknown]
  - Metastases to lung [Unknown]

NARRATIVE: CASE EVENT DATE: 20250830
